FAERS Safety Report 11487208 (Version 1)
Quarter: 2015Q3

REPORT INFORMATION
  Report Type: Spontaneous
  Country: US (occurrence: US)
  Receive Date: 20150910
  Receipt Date: 20150910
  Transmission Date: 20151125
  Serious: No
  Sender: FDA-Public Use
  Company Number: US-PFIZER INC-2015301831

PATIENT
  Sex: Male

DRUGS (2)
  1. HYDROCORTISONE. [Suspect]
     Active Substance: HYDROCORTISONE
     Dosage: STRENGTH 5 MG
  2. LYRICA [Suspect]
     Active Substance: PREGABALIN
     Dosage: STRENGTH 150 MG

REACTIONS (1)
  - Electrolyte imbalance [Unknown]
